FAERS Safety Report 17993323 (Version 5)
Quarter: 2020Q3

REPORT INFORMATION
  Report Type: Spontaneous
  Country: GB (occurrence: GB)
  Receive Date: 20200708
  Receipt Date: 20200921
  Transmission Date: 20201103
  Serious: Yes (Hospitalization, Other)
  Sender: FDA-Public Use
  Company Number: GB-BIOGEN-2020BI00894036

PATIENT
  Sex: Female

DRUGS (4)
  1. AVONEX PEN [Suspect]
     Active Substance: INTERFERON BETA-1A
     Dosage: 30MICROGRAMS/0.5ML (6MILLION UNITS)
     Route: 030
  2. AVONEX PEN [Suspect]
     Active Substance: INTERFERON BETA-1A
  3. AVONEX PEN [Suspect]
     Active Substance: INTERFERON BETA-1A
     Indication: MULTIPLE SCLEROSIS
     Dosage: 30MICROGRAMS/0.5ML (6MILLION UNITS)
     Route: 030
     Dates: start: 20060817
  4. AVONEX PEN [Suspect]
     Active Substance: INTERFERON BETA-1A

REACTIONS (2)
  - Mania [Unknown]
  - Bipolar disorder [Unknown]
